FAERS Safety Report 5261307-1 (Version None)
Quarter: 2007Q1

REPORT INFORMATION
  Report Type: 
  Country: None (occurrence: None)
  Receive Date: 20070307
  Receipt Date: 20070223
  Transmission Date: 20070707
  Serious: Yes (Other)
  Sender: FDA-Public Use
  Company Number: 2007BI004142

PATIENT
  Age: 59 Year
  Sex: Female
  Weight: 71.2147 kg

DRUGS (7)
  1. AVONEX [Suspect]
     Indication: MULTIPLE SCLEROSIS
     Dosage: 30 UG;QW;IM
     Route: 030
  2. AVONEX [Suspect]
     Indication: MULTIPLE SCLEROSIS
     Dosage: 30 UG;QW;IM
     Route: 030
     Dates: start: 20060101
  3. GABAPENTIN [Concomitant]
  4. LEVOTHYROXINE SODIUM [Concomitant]
  5. TOPROL-XL [Concomitant]
  6. TRAZODONE HCL [Concomitant]
  7. LISINOPRIL [Concomitant]

REACTIONS (2)
  - INFLUENZA LIKE ILLNESS [None]
  - MUSCLE SPASMS [None]
